FAERS Safety Report 8166948-X (Version None)
Quarter: 2012Q1

REPORT INFORMATION
  Report Type: 
  Country: None (occurrence: None)
  Receive Date: 20120227
  Receipt Date: 20120218
  Transmission Date: 20120608
  Serious: Yes (Other)
  Sender: FDA-Public Use
  Company Number: DE-ASTELLAS-2012EU001297

PATIENT
  Sex: Male

DRUGS (1)
  1. PROTOPIC [Suspect]
     Indication: PYODERMA GANGRENOSUM
     Dosage: 0.1 %, UNKNOWN/D
     Route: 061
     Dates: start: 20110101

REACTIONS (3)
  - OFF LABEL USE [None]
  - DRUG LEVEL INCREASED [None]
  - RENAL FAILURE [None]
